FAERS Safety Report 7255951-X (Version None)
Quarter: 2011Q1

REPORT INFORMATION
  Report Type: 
  Country: None (occurrence: None)
  Receive Date: 20110129
  Receipt Date: 20100602
  Transmission Date: 20110831
  Serious: No
  Sender: FDA-Public Use
  Company Number: US-ABBOTT-10P-163-0648596-00

PATIENT
  Age: 44 Year
  Sex: Female

DRUGS (13)
  1. MTX [Concomitant]
     Indication: RHEUMATOID ARTHRITIS
  2. FOLIC ACID [Concomitant]
     Indication: VITAMIN SUPPLEMENTATION
  3. HUMIRA [Suspect]
     Indication: RHEUMATOID ARTHRITIS
     Dates: start: 20100505
  4. ULTRAM ER [Concomitant]
     Indication: PAIN
  5. CELEBREX [Concomitant]
     Indication: RHEUMATOID ARTHRITIS
  6. PROVIGIL [Concomitant]
     Indication: NARCOLEPSY
  7. BUSPAR [Concomitant]
     Indication: FIBROMYALGIA
  8. VISTARIL [Concomitant]
     Indication: ANXIETY
     Dosage: BEDTIME
  9. FLEXERIL [Concomitant]
     Indication: RHEUMATOID ARTHRITIS
  10. CRESTOR [Concomitant]
     Indication: BLOOD CHOLESTEROL INCREASED
  11. LYRICA [Concomitant]
     Indication: FIBROMYALGIA
  12. VISTARIL [Concomitant]
     Indication: INSOMNIA
  13. CYMBALTA [Concomitant]
     Indication: DEPRESSION

REACTIONS (1)
  - FATIGUE [None]
